FAERS Safety Report 9761510 (Version 1)
Quarter: 2013Q4

REPORT INFORMATION
  Report Type: Spontaneous
  Country: US (occurrence: US)
  Receive Date: 20131216
  Receipt Date: 20131216
  Transmission Date: 20140711
  Serious: No
  Sender: FDA-Public Use
  Company Number: US-ABBVIE-13P-163-1143705-00

PATIENT
  Age: 44 Year
  Sex: Female
  Weight: 92.16 kg

DRUGS (3)
  1. PROGESTERONE [Suspect]
     Indication: HOT FLUSH
     Route: 048
     Dates: start: 20130822, end: 20130904
  2. LEVOTHYROXINE [Concomitant]
     Indication: HYPOTHYROIDISM
     Route: 048
  3. HYDROCHLOROTHIAZIDE [Concomitant]
     Indication: BLOOD PRESSURE ABNORMAL
     Route: 048

REACTIONS (4)
  - Abdominal pain [Not Recovered/Not Resolved]
  - Diarrhoea [Not Recovered/Not Resolved]
  - Constipation [Not Recovered/Not Resolved]
  - Weight decreased [Not Recovered/Not Resolved]
